FAERS Safety Report 5243044-2 (Version None)
Quarter: 2007Q1

REPORT INFORMATION
  Report Type: 
  Country: None (occurrence: None)
  Receive Date: 20070220
  Receipt Date: 20070220
  Transmission Date: 20070707
  Serious: Yes (Hospitalization)
  Sender: FDA-Public Use
  Company Number: None

PATIENT
  Sex: Female
  Weight: 94 kg

DRUGS (4)
  1. BEVACIZUMAB (RHUMAB VEGF) [Suspect]
     Dosage: 940 MG
  2. FLUOROURACIL [Suspect]
     Dosage: 10864 MG
  3. LEUCOVORIN CALCIUM [Suspect]
     Dosage: 1552 MG
  4. ELOXATIN [Suspect]
     Dosage: 330 MG

REACTIONS (1)
  - PULMONARY EMBOLISM [None]
